FAERS Safety Report 7009147-7 (Version None)
Quarter: 2010Q3

REPORT INFORMATION
  Report Type: 
  Country: None (occurrence: None)
  Receive Date: 20100923
  Receipt Date: 20100914
  Transmission Date: 20110219
  Serious: Yes (Hospitalization, Other)
  Sender: FDA-Public Use
  Company Number: US-JNJFOC-20100904847

PATIENT
  Sex: Female
  Weight: 55.79 kg

DRUGS (7)
  1. FENTANYL CITRATE [Suspect]
     Indication: SPINAL COLUMN STENOSIS
     Dosage: NDC#0781-7242-55
     Route: 062
  2. FENTANYL CITRATE [Suspect]
     Dosage: NDC#0781-7241-55
     Route: 062
  3. DOXAZOSIN MESILATE [Concomitant]
     Indication: HYPERTENSION
     Route: 048
  4. VERAPAMIL [Concomitant]
     Indication: HYPERTENSION
     Route: 048
  5. FUROSEMIDE [Concomitant]
     Indication: HYPERTENSION
     Dosage: 20 MG (2 TABLET) EVERY OTHER DAY TWICE
     Route: 048
  6. FUROSEMIDE [Concomitant]
     Dosage: 20 MG EVERY OTHER DAY TWICE
     Route: 048
  7. LISINOPRIL [Concomitant]
     Indication: CARDIAC DISORDER
     Route: 048

REACTIONS (7)
  - ABDOMINAL PAIN UPPER [None]
  - CARDIAC DISORDER [None]
  - CARDIAC MURMUR [None]
  - CHOLELITHIASIS [None]
  - FALL [None]
  - PRODUCT PACKAGING ISSUE [None]
  - VOMITING [None]
